FAERS Safety Report 12937927 (Version 1)
Quarter: 2016Q4

REPORT INFORMATION
  Report Type: Spontaneous
  Country: DE (occurrence: DE)
  Receive Date: 20161114
  Receipt Date: 20161114
  Transmission Date: 20170207
  Serious: Yes (Other)
  Sender: FDA-Public Use
  Company Number: GXKR2016DE005083

PATIENT

DRUGS (2)
  1. CEFUROXIME AXETIL. [Suspect]
     Active Substance: CEFUROXIME AXETIL
     Indication: SOFT TISSUE INFECTION
     Dosage: DAILY DOSE: 125 MG MILLGRAM(S) EVERY DAYS
     Route: 048
  2. ZYMAFLUOR D [Concomitant]
     Indication: PROPHYLAXIS
     Dosage: DAILY DOSE: 1 DF DOSAGE FORM EVERY DAYS
     Route: 048

REACTIONS (1)
  - Ulcerated haemangioma [Recovered/Resolved]

NARRATIVE: CASE EVENT DATE: 20160607
